FAERS Safety Report 7994601-1 (Version None)
Quarter: 2011Q4

REPORT INFORMATION
  Report Type: 
  Country: None (occurrence: None)
  Receive Date: 20111220
  Receipt Date: 20111213
  Transmission Date: 20120403
  Serious: Yes (Other)
  Sender: FDA-Public Use
  Company Number: BR-US-EMD SERONO, INC.-7095564

PATIENT
  Sex: Female

DRUGS (4)
  1. REBIF [Suspect]
     Indication: MULTIPLE SCLEROSIS
     Dates: start: 20110819, end: 20111102
  2. DYPIRONE(DIPYRONE) [Concomitant]
  3. LYRICA [Concomitant]
  4. IBUPROFEN [Concomitant]

REACTIONS (4)
  - PNEUMONIA [None]
  - INJECTION SITE ERYTHEMA [None]
  - IMMUNOSUPPRESSION [None]
  - INJECTION SITE HAEMATOMA [None]
